FAERS Safety Report 4393579-X (Version None)
Quarter: 2004Q3

REPORT INFORMATION
  Report Type: 
  Country: None (occurrence: None)
  Receive Date: 20040709
  Receipt Date: 20040607
  Transmission Date: 20050211
  Serious: Yes (Hospitalization)
  Sender: FDA-Public Use
  Company Number: JP-ROCHE-370045

PATIENT
  Age: 78 Year
  Sex: Female

DRUGS (2)
  1. PERDIPINE [Suspect]
     Indication: BLOOD PRESSURE INCREASED
     Route: 042
     Dates: start: 20040603, end: 20040603
  2. CEFOTIAM HYDROCHLORIDE [Concomitant]
     Indication: INFECTION PROPHYLAXIS
     Route: 041
     Dates: start: 20040603, end: 20040603

REACTIONS (3)
  - DYSPNOEA [None]
  - EXTRASYSTOLES [None]
  - HYPOXIA [None]
